FAERS Safety Report 17052988 (Version 2)
Quarter: 2019Q4

REPORT INFORMATION
  Report Type: Report from Study
  Country: US (occurrence: US)
  Receive Date: 20191120
  Receipt Date: 20191203
  Transmission Date: 20200122
  Serious: Yes (Other)
  Sender: FDA-Public Use
  Company Number: US-ROCHE-2440908

PATIENT
  Sex: Male

DRUGS (2)
  1. NUTROPIN [Suspect]
     Active Substance: SOMATROPIN
     Dosage: NUTROPIN NUSPIN 20 INJ: 1.4 MG SC DAILY
     Route: 058
     Dates: start: 20190926
  2. NUTROPIN [Suspect]
     Active Substance: SOMATROPIN
     Indication: HYPOPITUITARISM
     Dosage: STRENGTH: 20 MG/2 ML
     Route: 058

REACTIONS (5)
  - Haemorrhage [Unknown]
  - Injection site pain [Unknown]
  - Contusion [Unknown]
  - Product quality issue [Unknown]
  - Pain [Unknown]
